FAERS Safety Report 18061157 (Version 3)
Quarter: 2020Q3

REPORT INFORMATION
  Report Type: Other
  Country: IT (occurrence: IT)
  Receive Date: 20200723
  Receipt Date: 20200910
  Transmission Date: 20201103
  Serious: Yes (Death, Other)
  Sender: FDA-Public Use
  Company Number: IT-ROCHE-2646683

PATIENT
  Age: 59 Year
  Sex: Male

DRUGS (6)
  1. AZITHROMYCIN ANHYDROUS. [Concomitant]
     Active Substance: AZITHROMYCIN ANHYDROUS
  2. VANCOMYCIN [Concomitant]
     Active Substance: VANCOMYCIN
  3. ACTILYSE [Suspect]
     Active Substance: ALTEPLASE
     Indication: ISCHAEMIC STROKE
     Route: 042
  4. KALETRA [Concomitant]
     Active Substance: LOPINAVIR\RITONAVIR
  5. HYDROXYCHLOROQUINE [Concomitant]
     Active Substance: HYDROXYCHLOROQUINE
  6. GENTAMICIN. [Concomitant]
     Active Substance: GENTAMICIN

REACTIONS (8)
  - Mouth haemorrhage [Unknown]
  - Abscess [Unknown]
  - Ischaemia [Unknown]
  - Haemorrhage [Unknown]
  - Epistaxis [Unknown]
  - Cardiac arrest [Fatal]
  - Endocarditis [Unknown]
  - Enterococcal infection [Unknown]
